FAERS Safety Report 7042643-5 (Version None)
Quarter: 2010Q4

REPORT INFORMATION
  Report Type: 
  Country: None (occurrence: None)
  Receive Date: 20101013
  Receipt Date: 20100322
  Transmission Date: 20110411
  Serious: No
  Sender: FDA-Public Use
  Company Number: US-ASTRAZENECA-2010SE12532

PATIENT
  Age: 68 Year
  Sex: Male
  Weight: 81.6 kg

DRUGS (5)
  1. SYMBICORT [Suspect]
     Route: 055
  2. SPIRIVA [Concomitant]
  3. NORVASC [Concomitant]
  4. CRESTOR [Concomitant]
  5. LOVAZA [Concomitant]

REACTIONS (2)
  - DIARRHOEA [None]
  - DRY MOUTH [None]
